FAERS Safety Report 15185742 (Version 1)
Quarter: 2018Q3

REPORT INFORMATION
  Report Type: Spontaneous
  Country: US (occurrence: US)
  Receive Date: 20180625
  Receipt Date: 20180625
  Transmission Date: 20181010
  Serious: Yes (Hospitalization)
  Sender: FDA-Public Use
  Company Number: None

PATIENT
  Age: 68 Year
  Sex: Female

DRUGS (11)
  1. ACCUPRIL [Concomitant]
     Active Substance: QUINAPRIL HYDROCHLORIDE
  2. LEVEMIR [Concomitant]
     Active Substance: INSULIN DETEMIR
  3. ZETIA [Concomitant]
     Active Substance: EZETIMIBE
  4. ATENOLOL. [Concomitant]
     Active Substance: ATENOLOL
  5. CALCIUM ACETATE. [Concomitant]
     Active Substance: CALCIUM ACETATE
  6. HUMALOG [Concomitant]
     Active Substance: INSULIN LISPRO
  7. SIMPONI [Suspect]
     Active Substance: GOLIMUMAB
     Indication: ANKYLOSING SPONDYLITIS
     Dosage: ?          OTHER FREQUENCY:EVERY MONTH;?
     Route: 058
  8. AMLODIPINE [Concomitant]
     Active Substance: AMLODIPINE BESYLATE
  9. ASPIRIN. [Concomitant]
     Active Substance: ASPIRIN
  10. HCTZ [Concomitant]
     Active Substance: HYDROCHLOROTHIAZIDE
  11. LOSARTAN/HCTZ [Concomitant]
     Active Substance: HYDROCHLOROTHIAZIDE\LOSARTAN

REACTIONS (1)
  - Pneumonia [None]

NARRATIVE: CASE EVENT DATE: 20180521
